FAERS Safety Report 19386054 (Version 1)
Quarter: 2021Q2

REPORT INFORMATION
  Report Type: Spontaneous
  Country: JP (occurrence: JP)
  Receive Date: 20210608
  Receipt Date: 20210608
  Transmission Date: 20210717
  Serious: Yes (Other)
  Sender: FDA-Public Use
  Company Number: NVSJ2021JP008315

PATIENT
  Age: 76 Year
  Sex: Male

DRUGS (1)
  1. BEOVU [Suspect]
     Active Substance: BROLUCIZUMAB-DBLL
     Indication: AGE-RELATED MACULAR DEGENERATION
     Dosage: 6 MG, LEFT EYE
     Route: 031
     Dates: start: 20210519

REACTIONS (6)
  - Vision blurred [Unknown]
  - Vitreous opacities [Unknown]
  - Visual acuity reduced [Unknown]
  - Anterior chamber cell [Unknown]
  - Retinal vascular occlusion [Unknown]
  - Optic disc vascular disorder [Unknown]

NARRATIVE: CASE EVENT DATE: 20210520
